FAERS Safety Report 8563708-2 (Version None)
Quarter: 2012Q3

REPORT INFORMATION
  Report Type: 
  Country: None (occurrence: None)
  Receive Date: 20120803
  Receipt Date: 20120730
  Transmission Date: 20120928
  Serious: No
  Sender: FDA-Public Use
  Company Number: US-BIOGENIDEC-2012BI011274

PATIENT
  Age: 47 Year
  Sex: Female

DRUGS (1)
  1. AVONEX [Suspect]
     Indication: MULTIPLE SCLEROSIS
     Route: 030
     Dates: start: 20120323

REACTIONS (9)
  - DRY MOUTH [None]
  - FEELING HOT [None]
  - SLUGGISHNESS [None]
  - FUNGAL INFECTION [None]
  - INJURY [None]
  - URINARY INCONTINENCE [None]
  - TREMOR [None]
  - FEELING OF BODY TEMPERATURE CHANGE [None]
  - HAEMORRHAGE [None]
